FAERS Safety Report 10219282 (Version 1)
Quarter: 2014Q2

REPORT INFORMATION
  Report Type: Spontaneous
  Country: BR (occurrence: BR)
  Receive Date: 20140605
  Receipt Date: 20140605
  Transmission Date: 20141212
  Serious: Yes (Death, Other)
  Sender: FDA-Public Use
  Company Number: BR-ASTRAZENECA-2014SE38662

PATIENT
  Age: 76 Year
  Sex: Female

DRUGS (2)
  1. BRILINTA [Suspect]
     Indication: ANTICOAGULANT THERAPY
     Route: 048
     Dates: start: 201401, end: 20140403
  2. OTHER DRUGS [Concomitant]

REACTIONS (2)
  - Cardiac arrest [Fatal]
  - Therapy cessation [Unknown]
